FAERS Safety Report 24372237 (Version 5)
Quarter: 2025Q3

REPORT INFORMATION
  Report Type: Spontaneous
  Country: US (occurrence: US)
  Receive Date: 20240927
  Receipt Date: 20250910
  Transmission Date: 20251020
  Serious: No
  Sender: BRISTOL-MYERS SQUIBB COMPANY
  Company Number: US-BRISTOL-MYERS SQUIBB COMPANY-2024-152316

PATIENT
  Age: 52 Year
  Sex: Female

DRUGS (4)
  1. ORENCIA [Suspect]
     Active Substance: ABATACEPT
     Indication: Rheumatoid arthritis
     Dates: start: 202206
  2. ORENCIA [Suspect]
     Active Substance: ABATACEPT
     Dates: start: 202206
  3. ORENCIA [Suspect]
     Active Substance: ABATACEPT
     Dates: start: 202206
  4. ORENCIA [Suspect]
     Active Substance: ABATACEPT
     Dates: start: 202206

REACTIONS (3)
  - Loss of therapeutic response [Unknown]
  - Joint swelling [Unknown]
  - Arthralgia [Unknown]
